FAERS Safety Report 5026024-1 (Version None)
Quarter: 2006Q2

REPORT INFORMATION
  Report Type: 
  Country: None (occurrence: None)
  Receive Date: 20060614
  Receipt Date: 20060602
  Transmission Date: 20061013
  Serious: Yes (Death, Hospitalization)
  Sender: FDA-Public Use
  Company Number: DE-ROCHE-450235

PATIENT
  Age: 50 Year
  Sex: Male

DRUGS (8)
  1. MYCOPHENOLATE MOFETIL [Suspect]
     Route: 042
     Dates: start: 20051015, end: 20051016
  2. MYCOPHENOLATE MOFETIL [Suspect]
     Route: 042
     Dates: start: 20051017, end: 20051019
  3. MYCOPHENOLATE MOFETIL [Suspect]
     Route: 042
     Dates: start: 20051020, end: 20051020
  4. MYCOPHENOLATE MOFETIL [Suspect]
     Route: 042
     Dates: start: 20051021, end: 20051023
  5. MYCOPHENOLATE MOFETIL [Suspect]
     Route: 042
     Dates: start: 20051024, end: 20051024
  6. FK506 [Suspect]
     Dosage: THERAPY STOPPED DUE TO HIGH TACROLIMUS TROUGH LEVEL
     Route: 048
     Dates: start: 20051015, end: 20051017
  7. FK506 [Suspect]
     Dosage: THERAPY STOPPED DUE TO HIGH TACROLIMUS TROUGH LEVEL
     Route: 048
     Dates: start: 20051031, end: 20051101
  8. FK506 [Suspect]
     Route: 048
     Dates: start: 20051104, end: 20060113

REACTIONS (3)
  - HAEMODYNAMIC INSTABILITY [None]
  - PANCREATITIS NECROTISING [None]
  - SEPSIS [None]
